FAERS Safety Report 23938101 (Version 2)
Quarter: 2024Q2

REPORT INFORMATION
  Report Type: Spontaneous
  Country: IT (occurrence: IT)
  Receive Date: 20240604
  Receipt Date: 20240626
  Transmission Date: 20240716
  Serious: Yes (Other)
  Sender: FDA-Public Use
  Company Number: IT-002147023-NVSC2024IT115588

PATIENT
  Sex: Male

DRUGS (23)
  1. CYCLOSPORINE [Suspect]
     Active Substance: CYCLOSPORINE
     Indication: Renal transplant
     Dosage: 75 MG, QD (1 CAPSULE 8 A.M.)
     Route: 065
  2. CYCLOSPORINE [Suspect]
     Active Substance: CYCLOSPORINE
     Dosage: 50 MG, QD (1 CAPSULE 8 P.M.)
     Route: 065
  3. NORVASC [Concomitant]
     Active Substance: AMLODIPINE BESYLATE
     Indication: Product used for unknown indication
     Dosage: 5 MG, BID (1 TABLET/X2 DAY 8 A.M. AND 8 P.M)
     Route: 065
  4. PREDNISONE [Concomitant]
     Active Substance: PREDNISONE
     Indication: Glomerulonephritis membranoproliferative
     Dosage: 5 MG, QD (1 TABLET/DAY 8 A.M)
     Route: 065
  5. MYCOPHENOLIC ACID [Concomitant]
     Active Substance: MYCOPHENOLIC ACID
     Indication: Proteinuria
     Dosage: 1000 MG, BID (1 TABLET/X2 DAY 8 A.M. AND 11 P.M)
     Route: 065
  6. LASIX [Concomitant]
     Active Substance: FUROSEMIDE
     Indication: Nephrotic syndrome
     Dosage: 25 MG, QD (1 TABLET/DAY 9 A.M)
     Route: 065
  7. ALLOPURINOL [Concomitant]
     Active Substance: ALLOPURINOL
     Indication: Product used for unknown indication
     Dosage: 300 MG, (? TABLET/DAY 12 NOON)
     Route: 065
  8. IRBESARTAN [Concomitant]
     Active Substance: IRBESARTAN
     Indication: Proteinuria
     Dosage: 150 MG, QD (1 TABLET/DAY 12 NOON)
     Route: 065
  9. IRBESARTAN [Concomitant]
     Active Substance: IRBESARTAN
     Dosage: 300 MG, QD (1 CP/DIE ORE 12.00)
     Route: 065
  10. ROCALTROL [Concomitant]
     Active Substance: CALCITRIOL
     Indication: Product used for unknown indication
     Dosage: 0.25 MCG, QD (1 CAPSULE/D AY 4 P.M.)
     Route: 065
  11. SODIUM BICARBONATE [Concomitant]
     Active Substance: SODIUM BICARBONATE
     Indication: Product used for unknown indication
     Dosage: 500 MG, QD (1 TABLET/DAY 8 P.M)
     Route: 065
  12. ERYTHROPOIETIN [Concomitant]
     Active Substance: ERYTHROPOIETIN
     Indication: Anaemia
     Dosage: 6000 IU, Q3W (1 VIAL X3 (MONDAY-WEDNESDAY-FRIDAY)
     Route: 058
  13. DOSTINEX [Concomitant]
     Active Substance: CABERGOLINE
     Indication: Adenoma benign
     Dosage: 0.5 MG, QD (1/4 TABLET/DAY (SUNDAY ONLY)
     Route: 065
  14. LANSOPRAZOLE [Concomitant]
     Active Substance: LANSOPRAZOLE
     Indication: Product used for unknown indication
     Dosage: 30 MG, QD
     Route: 065
  15. FUROSEMIDE [Concomitant]
     Active Substance: FUROSEMIDE
     Indication: Product used for unknown indication
     Dosage: 25 MG, QD (ORE 9.00)
     Route: 065
  16. ALLOPURINOL [Concomitant]
     Active Substance: ALLOPURINOL
     Indication: Product used for unknown indication
     Dosage: 300 MG (? CP/DIE ORE 12.00)
     Route: 065
  17. KAYEXALATE [Concomitant]
     Active Substance: SODIUM POLYSTYRENE SULFONATE
     Indication: Product used for unknown indication
     Dosage: UNK (1 MIS X3/WEEK)
     Route: 065
  18. CALCITRIOL [Concomitant]
     Active Substance: CALCITRIOL
     Indication: Product used for unknown indication
     Dosage: 0.25 UG (ORE 16.00)
     Route: 065
  19. SODIUM BICARBONATE [Concomitant]
     Active Substance: SODIUM BICARBONATE
     Indication: Product used for unknown indication
     Dosage: 500 MG (ORE 20.00)
     Route: 065
  20. ROXADUSTAT [Concomitant]
     Active Substance: ROXADUSTAT
     Indication: Product used for unknown indication
     Dosage: 100 MG, Q3W
     Route: 065
  21. NEBIVOLOL [Concomitant]
     Active Substance: NEBIVOLOL
     Indication: Product used for unknown indication
     Dosage: 5 MG, QD (ORE 17.00)
     Route: 065
  22. CABERGOLINE [Concomitant]
     Active Substance: CABERGOLINE
     Indication: Product used for unknown indication
     Dosage: 0.5 MG, QW (1/4 CP/WEEK (SOLO DOMENICA))
     Route: 065
  23. FERINJECT [Concomitant]
     Active Substance: FERRIC CARBOXYMALTOSE
     Indication: Product used for unknown indication
     Dosage: UNK
     Route: 065

REACTIONS (7)
  - Disease recurrence [Unknown]
  - Toxicity to various agents [Unknown]
  - Road traffic accident [Unknown]
  - Haematoma [Unknown]
  - Blood parathyroid hormone abnormal [Unknown]
  - Beta 2 microglobulin abnormal [Unknown]
  - Microalbuminuria [Unknown]

NARRATIVE: CASE EVENT DATE: 20230214
